FAERS Safety Report 7043700-X (Version None)
Quarter: 2010Q3

REPORT INFORMATION
  Report Type: 
  Country: None (occurrence: None)
  Receive Date: 20100929
  Receipt Date: 20100707
  Transmission Date: 20110219
  Serious: No
  Sender: FDA-Public Use
  Company Number: US-WYE-H16013810

PATIENT
  Age: 47 Year
  Sex: Female
  Weight: 141.65 kg

DRUGS (14)
  1. PRISTIQ [Suspect]
     Dosage: 50 MG 1X PER 1 DAY, ORAL
     Route: 048
     Dates: start: 20100704
  2. MIRALAX [Concomitant]
  3. XANAX [Concomitant]
  4. NEURONTIN [Concomitant]
  5. LEVOXYL [Concomitant]
  6. NEXIUM [Concomitant]
  7. CYMBALTA [Concomitant]
  8. SIMVASTATIN [Concomitant]
  9. ADVAIR DISKUS 100/50 [Concomitant]
  10. FLOVENT [Concomitant]
  11. ATROVENT [Concomitant]
  12. ADVIL LIQUI-GELS [Concomitant]
  13. ASPIRIN [Concomitant]
  14. MIRTAZAPINE [Concomitant]

REACTIONS (5)
  - BLOOD GLUCOSE DECREASED [None]
  - DYSPEPSIA [None]
  - FEELING ABNORMAL [None]
  - IMPAIRED DRIVING ABILITY [None]
  - SOMNOLENCE [None]
